FAERS Safety Report 9664492 (Version 1)
Quarter: 2013Q4

REPORT INFORMATION
  Report Type: Spontaneous
  Country: GB (occurrence: GB)
  Receive Date: 20131101
  Receipt Date: 20131101
  Transmission Date: 20140711
  Serious: Yes (Disabling)
  Sender: FDA-Public Use
  Company Number: GB-TEVA-441193ISR

PATIENT
  Age: 38 Year
  Sex: Female
  Weight: 78 kg

DRUGS (1)
  1. METHOTREXATE [Suspect]
     Dosage: ONE-OFF DOSE
     Route: 030

REACTIONS (1)
  - Hypoaesthesia [Not Recovered/Not Resolved]
